FAERS Safety Report 8323226-3 (Version None)
Quarter: 2012Q2

REPORT INFORMATION
  Report Type: 
  Country: None (occurrence: None)
  Receive Date: 20120430
  Receipt Date: 20120415
  Transmission Date: 20120825
  Serious: Yes (Other)
  Sender: FDA-Public Use
  Company Number: US-JNJFOC-20120414265

PATIENT
  Age: 26 Year
  Sex: Male
  Weight: 81.65 kg

DRUGS (1)
  1. VISINE EYE DROPS [Suspect]
     Indication: DRY EYE
     Dosage: 1 DROP IN LEFT EYE
     Route: 047
     Dates: start: 20120410, end: 20120410

REACTIONS (8)
  - VISION BLURRED [None]
  - EYE SWELLING [None]
  - EYE IRRITATION [None]
  - OCULAR HYPERAEMIA [None]
  - ABNORMAL SENSATION IN EYE [None]
  - EYE PAIN [None]
  - EYE DISCHARGE [None]
  - OFF LABEL USE [None]
